FAERS Safety Report 11205068 (Version 2)
Quarter: 2017Q3

REPORT INFORMATION
  Report Type: Spontaneous
  Country: IN (occurrence: IN)
  Receive Date: 20150622
  Receipt Date: 20170920
  Transmission Date: 20171127
  Serious: Yes (Other)
  Sender: FDA-Public Use
  Company Number: IN-SUN PHARMACEUTICAL INDUSTRIES LTD-2015R1-99008

PATIENT
  Age: 50 Year
  Sex: Male

DRUGS (5)
  1. GLIMEPIRIDE. [Concomitant]
     Active Substance: GLIMEPIRIDE
     Indication: DIABETES MELLITUS
     Dosage: 2 MG, DAILY
     Route: 048
  2. METFORMIN [Concomitant]
     Active Substance: METFORMIN HYDROCHLORIDE
     Indication: DIABETES MELLITUS
     Dosage: 2 G, DAILY
     Route: 048
  3. PREMIXED INSULIN [Concomitant]
     Indication: DIABETES MELLITUS
     Dosage: UNK
     Route: 065
  4. PENTAZOCINE [Suspect]
     Active Substance: PENTAZOCINE
     Indication: PRODUCT USED FOR UNKNOWN INDICATION
     Dosage: UNK
     Route: 030
  5. PENTAZOCINE [Suspect]
     Active Substance: PENTAZOCINE
     Indication: DRUG USE DISORDER
     Dosage: UNK
     Route: 042

REACTIONS (5)
  - Drug administered at inappropriate site [Unknown]
  - Muscular weakness [Recovered/Resolved]
  - Thrombophlebitis superficial [Recovered/Resolved]
  - Drug dependence [Recovered/Resolved]
  - Skin ulcer [Recovered/Resolved]
